FAERS Safety Report 5015277-1 (Version None)
Quarter: 2006Q2

REPORT INFORMATION
  Report Type: 
  Country: None (occurrence: None)
  Receive Date: 20060601
  Receipt Date: 20060519
  Transmission Date: 20061013
  Serious: Yes (Hospitalization, Congenital Anomaly)
  Sender: FDA-Public Use
  Company Number: PHBS2006IL07643

PATIENT
  Sex: Female

DRUGS (3)
  1. TEGRETOL [Suspect]
     Route: 064
  2. TOPAMAX [Suspect]
     Route: 064
  3. CLONEX [Suspect]
     Route: 064

REACTIONS (2)
  - DIGEORGE'S SYNDROME [None]
  - DRUG EXPOSURE DURING PREGNANCY [None]
